FAERS Safety Report 24686360 (Version 1)
Quarter: 2024Q4

REPORT INFORMATION
  Report Type: Spontaneous
  Country: DE (occurrence: DE)
  Receive Date: 20241202
  Receipt Date: 20241202
  Transmission Date: 20250114
  Serious: Yes (Death, Hospitalization)
  Sender: NOVARTIS
  Company Number: DE-002147023-NVSC2024DE229242

PATIENT
  Age: 43 Year
  Sex: Female
  Weight: 58 kg

DRUGS (4)
  1. LETROZOLE [Suspect]
     Active Substance: LETROZOLE
     Indication: Breast cancer
     Dosage: 2.5 MG, QD
     Route: 048
     Dates: start: 20220126, end: 20230125
  2. PALBOCICLIB [Suspect]
     Active Substance: PALBOCICLIB
     Indication: Breast cancer
     Dosage: 125 MG, QD(FROM DAY 1 TO DAY 21 EVERY 28-DAY CYCLE)
     Route: 048
     Dates: start: 20220126, end: 20230122
  3. PAMIDRONATE DISODIUM [Concomitant]
     Active Substance: PAMIDRONATE DISODIUM
     Indication: Prophylaxis
     Dosage: UNK
     Route: 042
     Dates: start: 20211021
  4. LEUPROLIDE ACETATE [Concomitant]
     Active Substance: LEUPROLIDE ACETATE
     Indication: Prophylaxis
     Dosage: UNK
     Route: 058
     Dates: start: 20220421, end: 20230102

REACTIONS (3)
  - Breast cancer [Fatal]
  - Malignant neoplasm progression [Fatal]
  - Paraplegia [Not Recovered/Not Resolved]

NARRATIVE: CASE EVENT DATE: 20230126
